FAERS Safety Report 7582326-6 (Version None)
Quarter: 2011Q2

REPORT INFORMATION
  Report Type: 
  Country: None (occurrence: None)
  Receive Date: 20110630
  Receipt Date: 20110620
  Transmission Date: 20111010
  Serious: Yes (Death)
  Sender: FDA-Public Use
  Company Number: US-JNJFOC-20110105380

PATIENT
  Sex: Female
  Weight: 52.16 kg

DRUGS (4)
  1. ORPHENADRINE CITRATE [Concomitant]
     Route: 065
  2. ALPRAZOLAM [Suspect]
     Indication: PRODUCT USED FOR UNKNOWN INDICATION
     Route: 065
  3. VALPROIC ACID [Concomitant]
     Route: 065
  4. FENTANYL-100 [Suspect]
     Indication: PAIN
     Route: 062

REACTIONS (2)
  - COMPLETED SUICIDE [None]
  - TOXICITY TO VARIOUS AGENTS [None]
